FAERS Safety Report 19513985 (Version 2)
Quarter: 2021Q3

REPORT INFORMATION
  Report Type: Spontaneous
  Country: CA (occurrence: CA)
  Receive Date: 20210709
  Receipt Date: 20210824
  Transmission Date: 20211014
  Serious: Yes (Other)
  Sender: FDA-Public Use
  Company Number: CA-PFIZER INC-2021715032

PATIENT
  Age: 88 Year
  Sex: Male
  Weight: 86.18 kg

DRUGS (4)
  1. VYNDAQEL [Suspect]
     Active Substance: TAFAMIDIS MEGLUMINE
     Dosage: 20 MG, 1X/DAY
     Route: 048
     Dates: start: 202106, end: 202106
  2. VITAMINS [ASCORBIC ACID;ERGOCALCIFEROL;NICOTINAMIDE;RETINOL;RIBOFLAVIN [Concomitant]
     Active Substance: ASCORBIC ACID\ERGOCALCIFEROL\NIACINAMIDE\RETINOL\RIBOFLAVIN\THIAMINE
     Dosage: UNK
  3. VYNDAQEL [Suspect]
     Active Substance: TAFAMIDIS MEGLUMINE
     Indication: CARDIAC AMYLOIDOSIS
     Dosage: 80 MG, 1X/DAY
     Route: 048
     Dates: start: 20210608, end: 202106
  4. VYNDAQEL [Suspect]
     Active Substance: TAFAMIDIS MEGLUMINE
     Indication: CARDIAC AMYLOIDOSIS
     Dosage: 40 MG, 1X/DAY
     Route: 048
     Dates: start: 202106, end: 202106

REACTIONS (7)
  - Skin burning sensation [Unknown]
  - Eye pruritus [Unknown]
  - Dysphagia [Unknown]
  - Gingival swelling [Unknown]
  - Insomnia [Unknown]
  - Pruritus [Unknown]
  - Swollen tongue [Unknown]

NARRATIVE: CASE EVENT DATE: 202106
